FAERS Safety Report 8296001-6 (Version None)
Quarter: 2012Q2

REPORT INFORMATION
  Report Type: 
  Country: None (occurrence: None)
  Receive Date: 20120418
  Receipt Date: 20120411
  Transmission Date: 20120825
  Serious: Yes (Other)
  Sender: FDA-Public Use
  Company Number: JP-B.I. PHARMACEUTICALS,INC./RIDGEFIELD-2012-BP-06924NB

PATIENT
  Age: 80 Year
  Sex: Female

DRUGS (2)
  1. PRADAXA [Suspect]
     Route: 065
  2. PRADAXA [Suspect]
     Dosage: 150 MG
     Route: 065
     Dates: start: 20120301, end: 20120401

REACTIONS (2)
  - INTRA-ABDOMINAL HAEMORRHAGE [None]
  - COAGULOPATHY [None]
